FAERS Safety Report 8830181 (Version 1)
Quarter: 2012Q4

REPORT INFORMATION
  Report Type: 
  Country: US (occurrence: US)
  Receive Date: 20121008
  Receipt Date: 20121008
  Transmission Date: 20130627
  Serious: Yes (Death, Hospitalization, Other)
  Sender: FDA-Public Use
  Company Number: US-BAYER-2012-104395

PATIENT
  Age: 63 Year
  Sex: Male
  Weight: 125 kg

DRUGS (34)
  1. TRASYLOL [Suspect]
     Indication: CORONARY ARTERY BYPASS
     Dosage: 1 ml, ONCE
     Route: 042
     Dates: start: 20070629, end: 20070629
  2. TRASYLOL [Suspect]
     Indication: CORONARY ARTERY BYPASS
     Dosage: Loading dose: 199mL followed by 50ml/hr continuous infustion
     Route: 042
     Dates: start: 20070629, end: 20070629
  3. TRASYLOL [Suspect]
     Indication: CORONARY ARTERY BYPASS
     Dosage: 200mL cardiopulmonary bypass prime
     Route: 042
     Dates: start: 20070629, end: 20070629
  4. ACETYLSALICYLIC ACID (} 100 MG) [Concomitant]
  5. PEPCID [Concomitant]
  6. PLAVIX [Concomitant]
  7. HYDROCHLOROTHIAZIDE [Concomitant]
  8. SPIRIVA [Concomitant]
  9. SIMVASTATIN [Concomitant]
  10. CALCIUM CHLORIDE [Concomitant]
     Dosage: UNK
     Route: 042
     Dates: start: 20070629
  11. ESMOLOL [Concomitant]
     Dosage: UNK
     Route: 042
     Dates: start: 20070629
  12. ETOMIDATE [Concomitant]
     Dosage: UNK
     Route: 042
     Dates: start: 20070629
  13. FENTANYL [Concomitant]
     Dosage: UNK
     Route: 042
     Dates: start: 20070629
  14. HEPARIN [Concomitant]
     Dosage: UNK
     Route: 042
     Dates: start: 20070629
  15. HEPARIN [Concomitant]
     Dosage: 40,000 units bypass
  16. INSULIN [Concomitant]
     Dosage: UNK
     Route: 042
     Dates: start: 20070629
  17. KEFZOL [Concomitant]
     Dosage: UNK
     Route: 042
     Dates: start: 20070629
  18. LASIX [Concomitant]
     Dosage: UNK
     Route: 042
     Dates: start: 20070629
  19. LIDOCAINE [Concomitant]
     Dosage: UNK
     Route: 042
     Dates: start: 20070629
  20. NITROGLYCERINE [Concomitant]
     Dosage: UNK
     Route: 042
     Dates: start: 20070629
  21. PAVULON [Concomitant]
     Dosage: UNK
     Route: 042
     Dates: start: 20070629
  22. PROPOFOL [Concomitant]
     Dosage: 25
     Route: 042
     Dates: start: 20070629
  23. PROTAMINE [Concomitant]
     Dosage: UNK
     Route: 042
     Dates: start: 20070629
  24. VERSED [Concomitant]
     Dosage: UNK
     Route: 042
     Dates: start: 20070629
  25. THIOPENTAL [Concomitant]
     Dosage: UNK
     Route: 042
     Dates: start: 20070629
  26. ALBUMIN [Concomitant]
     Dosage: UNK
     Route: 042
     Dates: start: 20070629
  27. ALBUMIN [Concomitant]
     Dosage: 50mg bypass
  28. HESPAN [Concomitant]
     Dosage: UNK
     Route: 042
     Dates: start: 20070629
  29. STP [Concomitant]
     Dosage: UNK
     Route: 042
     Dates: start: 20070629
  30. PHENYLEPHRINE [PHENYLEPHRINE] [Concomitant]
     Indication: HYPOTENSION
     Dosage: UNK
     Route: 042
     Dates: start: 20070629
  31. SODIUM BICARBONATE [Concomitant]
     Dosage: bypass
     Dates: start: 20070629
  32. MANNITOL [Concomitant]
     Dosage: bypass
     Dates: start: 20070629
  33. SOLUMEDROL [Concomitant]
     Dosage: bypass
     Dates: start: 20070629
  34. CELL SAVER [Concomitant]

REACTIONS (3)
  - Multi-organ failure [Fatal]
  - Renal failure acute [None]
  - Renal tubular necrosis [None]
